FAERS Safety Report 11415202 (Version 1)
Quarter: 2015Q3

REPORT INFORMATION
  Report Type: Report from Study
  Country: JP (occurrence: JP)
  Receive Date: 20150825
  Receipt Date: 20150825
  Transmission Date: 20151125
  Serious: Yes (Other)
  Sender: FDA-Public Use
  Company Number: JP-ASTELLAS-2015US030286

PATIENT

DRUGS (2)
  1. ERLOTINIB [Suspect]
     Active Substance: ERLOTINIB
     Indication: NON-SMALL CELL LUNG CANCER
     Route: 048
  2. AMRUBICIN [Suspect]
     Active Substance: AMRUBICIN
     Indication: NON-SMALL CELL LUNG CANCER
     Dosage: 30 MG/M2, OTHER ON DAY 1-3
     Route: 042

REACTIONS (1)
  - Leukopenia [Unknown]
